FAERS Safety Report 6235947-7 (Version None)
Quarter: 2009Q2

REPORT INFORMATION
  Report Type: 
  Country: None (occurrence: None)
  Receive Date: 20090619
  Receipt Date: 20090609
  Transmission Date: 20091009
  Serious: Yes (Other)
  Sender: FDA-Public Use
  Company Number: PHHY2009BR22972

PATIENT
  Age: 21 Year
  Sex: Male

DRUGS (1)
  1. TRILEPTAL [Suspect]
     Dosage: 2 TABLETS AT NIGHT
     Dates: start: 20081201

REACTIONS (2)
  - CONVULSION [None]
  - PERIPHERAL COLDNESS [None]
